FAERS Safety Report 17749352 (Version 1)
Quarter: 2020Q2

REPORT INFORMATION
  Report Type: Spontaneous
  Country: DE (occurrence: DE)
  Receive Date: 20200506
  Receipt Date: 20200506
  Transmission Date: 20200714
  Serious: Yes (Other)
  Sender: FDA-Public Use
  Company Number: DE-RICONPHARMA, LLC-2020RIC000003

PATIENT
  Age: 57 Year
  Sex: Male

DRUGS (1)
  1. CHLORTHALIDONE. [Suspect]
     Active Substance: CHLORTHALIDONE
     Indication: HYPERTENSION
     Dosage: UNK
     Route: 065

REACTIONS (2)
  - Angle closure glaucoma [Recovered/Resolved]
  - Choroidal effusion [Recovered/Resolved]
